FAERS Safety Report 10233709 (Version 1)
Quarter: 2014Q2

REPORT INFORMATION
  Report Type: Spontaneous
  Country: JP (occurrence: JP)
  Receive Date: 20140612
  Receipt Date: 20140612
  Transmission Date: 20141212
  Serious: Yes (Other)
  Sender: FDA-Public Use
  Company Number: JP-WATSON-2014-12621

PATIENT
  Age: 53 Year
  Sex: Female
  Weight: 63 kg

DRUGS (3)
  1. RISPERIDONE (UNKNOWN) [Suspect]
     Indication: SCHIZOPHRENIA
     Dosage: 5 MG, DAILY
     Route: 065
  2. LEVOMEPROMAZINE [Concomitant]
     Indication: SCHIZOPHRENIA
     Dosage: 25 MG, UNKNOWN
     Route: 065
  3. ZOPICLONE [Concomitant]
     Indication: SCHIZOPHRENIA
     Dosage: 7.5 MG, UNKNOWN
     Route: 065

REACTIONS (2)
  - Hyperprolactinaemia [Recovered/Resolved]
  - Menstruation irregular [Unknown]
